FAERS Safety Report 19372903 (Version 1)
Quarter: 2021Q2

REPORT INFORMATION
  Report Type: Spontaneous
  Country: US (occurrence: US)
  Receive Date: 20210604
  Receipt Date: 20210604
  Transmission Date: 20210717
  Serious: Yes (Disabling)
  Sender: FDA-Public Use
  Company Number: None

PATIENT
  Age: 36 Year
  Sex: Female
  Weight: 54 kg

DRUGS (1)
  1. HYDROCORTISONE CREAM USP 2.5% [Suspect]
     Active Substance: HYDROCORTISONE
     Indication: TINEA INFECTION
     Dosage: ?          QUANTITY:1 TUBE;?
     Route: 061
     Dates: start: 20210201, end: 20210301

REACTIONS (7)
  - Chemical burn of skin [None]
  - Blister [None]
  - Anxiety [None]
  - Chills [None]
  - Night sweats [None]
  - Nightmare [None]
  - Condition aggravated [None]

NARRATIVE: CASE EVENT DATE: 20210301
